FAERS Safety Report 25358905 (Version 2)
Quarter: 2025Q4

REPORT INFORMATION
  Report Type: Spontaneous
  Country: US (occurrence: US)
  Receive Date: 20250526
  Receipt Date: 20251201
  Transmission Date: 20260118
  Serious: No
  Sender: SANOFI AVENTIS
  Company Number: US-SA-2025SA148834

PATIENT
  Age: 68 Year
  Sex: Male

DRUGS (1)
  1. DUPIXENT [Suspect]
     Active Substance: DUPILUMAB
     Indication: Asthma
     Dosage: 600 MG, 1X
     Route: 058

REACTIONS (4)
  - Blood glucose decreased [Unknown]
  - Dyspnoea [Unknown]
  - Gingival bleeding [Unknown]
  - Back pain [Unknown]
